FAERS Safety Report 15424153 (Version 1)
Quarter: 2018Q3

REPORT INFORMATION
  Report Type: Spontaneous
  Country: KW (occurrence: KW)
  Receive Date: 20180925
  Receipt Date: 20180925
  Transmission Date: 20181010
  Serious: Yes (Hospitalization)
  Sender: FDA-Public Use
  Company Number: KW-MYLANLABS-2018M1068528

PATIENT
  Age: 12 Year
  Sex: Female

DRUGS (1)
  1. QUETIAPINE. [Suspect]
     Active Substance: QUETIAPINE
     Indication: BIPOLAR I DISORDER
     Dosage: TITRATED UP TO THE DOSE OF 600 MG/DAY
     Route: 065

REACTIONS (3)
  - Hypertriglyceridaemia [Recovered/Resolved]
  - Pancreatitis [Recovered/Resolved]
  - Off label use [Recovered/Resolved]
